FAERS Safety Report 18315651 (Version 1)
Quarter: 2020Q3

REPORT INFORMATION
  Report Type: Report from Study
  Country: GT (occurrence: GT)
  Receive Date: 20200926
  Receipt Date: 20200926
  Transmission Date: 20201103
  Serious: Yes (Other)
  Sender: FDA-Public Use
  Company Number: NVSC2020GT259457

PATIENT
  Age: 57 Year
  Sex: Female

DRUGS (1)
  1. GALVUS MET [Suspect]
     Active Substance: METFORMIN HYDROCHLORIDE\VILDAGLIPTIN
     Indication: BLOOD GLUCOSE INCREASED
     Dosage: UNK
     Route: 065
     Dates: start: 20200820

REACTIONS (1)
  - COVID-19 [Unknown]
